FAERS Safety Report 13340391 (Version 2)
Quarter: 2017Q2

REPORT INFORMATION
  Report Type: Spontaneous
  Country: US (occurrence: US)
  Receive Date: 20170316
  Receipt Date: 20170602
  Transmission Date: 20170830
  Serious: No
  Sender: FDA-Public Use
  Company Number: US-PFIZER INC-2017113231

PATIENT
  Age: 70 Year
  Sex: Female

DRUGS (4)
  1. AMLODIPINE [Concomitant]
     Active Substance: AMLODIPINE BESYLATE
     Dosage: 10 MG, UNK
  2. INLYTA [Suspect]
     Active Substance: AXITINIB
     Dosage: 5 MG, 1X/DAY
  3. METFORMIN [Concomitant]
     Active Substance: METFORMIN HYDROCHLORIDE
     Indication: DIABETES MELLITUS
     Dosage: 100 MG, UNK
     Dates: start: 2000
  4. INLYTA [Suspect]
     Active Substance: AXITINIB
     Indication: RENAL CANCER
     Dosage: 10 MG, TWICE DAILY (EVERY 12 HOURS)

REACTIONS (3)
  - Blister [Recovered/Resolved]
  - Thyroid disorder [Unknown]
  - Hypertension [Unknown]

NARRATIVE: CASE EVENT DATE: 201610
